FAERS Safety Report 8265082-8 (Version None)
Quarter: 2012Q2

REPORT INFORMATION
  Report Type: 
  Country: None (occurrence: None)
  Receive Date: 20120406
  Receipt Date: 20120330
  Transmission Date: 20120825
  Serious: Yes (Life-Threatening, Hospitalization)
  Sender: FDA-Public Use
  Company Number: US-CELGENEUS-163-21880-12040028

PATIENT
  Sex: Male

DRUGS (13)
  1. REVLIMID [Suspect]
     Indication: MULTIPLE MYELOMA
     Dosage: 25 MILLIGRAM
     Route: 048
     Dates: start: 20111201
  2. AMIODARONE [Concomitant]
     Dosage: 200 MILLIGRAM
     Route: 065
  3. LIPITOR [Concomitant]
     Dosage: 100 MILLIGRAM
     Route: 048
  4. PRADAXA [Concomitant]
     Dosage: 150 MILLIGRAM
     Route: 065
  5. LASIX [Concomitant]
     Dosage: 20 MILLIGRAM
     Route: 065
  6. VIT D3 [Concomitant]
     Dosage: 50 MILLIGRAM
     Route: 065
  7. REMERON [Concomitant]
     Dosage: 15 MILLIGRAM
     Route: 048
  8. DEXAMETHASONE TAB [Concomitant]
     Dosage: 40 MILLIGRAM
     Route: 065
  9. SENOKOT [Concomitant]
     Dosage: 8.6 MILLIGRAM
     Route: 065
  10. SINGULAIR [Concomitant]
     Dosage: 10 MILLIGRAM
     Route: 048
  11. PRILOSEC [Concomitant]
     Dosage: 20 MILLIGRAM
     Route: 065
  12. ALLOPURINOL [Concomitant]
     Dosage: 200 MILLIGRAM
     Route: 065
  13. AMBIEN [Concomitant]
     Dosage: 5 MILLIGRAM
     Route: 048

REACTIONS (2)
  - SEPSIS [None]
  - PNEUMONIA [None]
